FAERS Safety Report 8114526-0 (Version None)
Quarter: 2012Q1

REPORT INFORMATION
  Report Type: 
  Country: None (occurrence: None)
  Receive Date: 20120206
  Receipt Date: 20120130
  Transmission Date: 20120608
  Serious: Yes (Other)
  Sender: FDA-Public Use
  Company Number: US-PFIZER INC-2012026054

PATIENT
  Sex: Female
  Weight: 72.109 kg

DRUGS (4)
  1. TOVIAZ [Concomitant]
     Indication: HYPERTONIC BLADDER
     Dosage: 8MG, DAILY
  2. VENLAFAXINE HCL [Suspect]
     Indication: DEPRESSION
     Dosage: UNK
  3. EFFEXOR XR [Suspect]
     Indication: DEPRESSION
     Dosage: 75 MG, DAILY
  4. TYSABRI [Concomitant]
     Indication: MULTIPLE SCLEROSIS
     Dosage: UNK, MONTHLY

REACTIONS (3)
  - SUICIDAL IDEATION [None]
  - BLOOD CHOLESTEROL INCREASED [None]
  - DEPRESSION [None]
